FAERS Safety Report 10619451 (Version 2)
Quarter: 2015Q1

REPORT INFORMATION
  Report Type: Spontaneous
  Country: CM (occurrence: None)
  Receive Date: 20141126
  Receipt Date: 20150122
  Transmission Date: 20150720
  Serious: Yes (Life-Threatening, Hospitalization, Disabling, Other)
  Sender: FDA-Public Use
  Company Number: 2014AMD00129

PATIENT
  Age: 40 Year
  Sex: Female
  Weight: 65 kg

DRUGS (5)
  1. MECTIZAN [Suspect]
     Active Substance: IVERMECTIN
     Indication: FILARIASIS LYMPHATIC
     Dosage: 4 TABLETS 1XDAY,ORAL.
     Route: 048
     Dates: start: 20140831
  2. ALBENDAZOLE TABLETS (ALBENDAZOLE) TABLET [Suspect]
     Active Substance: ALBENDAZOLE
     Indication: ONCHOCERCIASIS
     Dates: start: 20140831
  3. ALBENDAZOLE TABLETS (ALBENDAZOLE) TABLET [Suspect]
     Active Substance: ALBENDAZOLE
     Indication: FILARIASIS LYMPHATIC
     Dates: start: 20140831
  4. MECTIZAN [Suspect]
     Active Substance: IVERMECTIN
     Indication: ONCHOCERCIASIS
     Dosage: 4 TABLETS 1XDAY,ORAL.
     Route: 048
     Dates: start: 20140831
  5. YELLOW FEVER VACCINE NOS [Concomitant]
     Active Substance: YELLOW FEVER VIRUS STRAIN 17D-204 LIVE ANTIGEN

REACTIONS (7)
  - Pruritus [None]
  - Haemoglobin decreased [None]
  - Urticaria [None]
  - Stevens-Johnson syndrome [None]
  - Pain [None]
  - Skin exfoliation [None]
  - Generalised oedema [None]

NARRATIVE: CASE EVENT DATE: 20140903
